FAERS Safety Report 4370475-5 (Version None)
Quarter: 2004Q2

REPORT INFORMATION
  Report Type: 
  Country: None (occurrence: None)
  Receive Date: 20040603
  Receipt Date: 20040204
  Transmission Date: 20050107
  Serious: No
  Sender: FDA-Public Use
  Company Number: US-BRISTOL-MYERS SQUIBB COMPANY-12495818

PATIENT
  Age: 47 Year
  Sex: Male
  Weight: 83 kg

DRUGS (6)
  1. ABILIFY [Suspect]
     Indication: SCHIZOPHRENIA
     Route: 048
  2. ABILIFY [Suspect]
     Indication: PARANOIA
     Route: 048
  3. ZOCOR [Concomitant]
  4. PREVACID [Concomitant]
  5. TRAZODONE HCL [Concomitant]
  6. DARVOCET [Concomitant]

REACTIONS (2)
  - INCREASED APPETITE [None]
  - PSYCHOMOTOR HYPERACTIVITY [None]
